FAERS Safety Report 4433496-X (Version None)
Quarter: 2004Q3

REPORT INFORMATION
  Report Type: 
  Country: None (occurrence: None)
  Receive Date: 20040824
  Receipt Date: 20040809
  Transmission Date: 20050211
  Serious: Yes (Hospitalization)
  Sender: FDA-Public Use
  Company Number: 2004CG01565

PATIENT
  Age: 78 Year
  Sex: Male

DRUGS (2)
  1. ZOLADEX [Suspect]
     Indication: PROSTATE CANCER
     Dates: start: 20031110
  2. CORDARONE [Concomitant]

REACTIONS (4)
  - HAEMATURIA [None]
  - LEUKOCYTOCLASTIC VASCULITIS [None]
  - PROTEINURIA [None]
  - SKIN REACTION [None]
